FAERS Safety Report 9275496 (Version 4)
Quarter: 2014Q2

REPORT INFORMATION
  Report Type: Spontaneous
  Country: US (occurrence: US)
  Receive Date: 20130507
  Receipt Date: 20140507
  Transmission Date: 20141212
  Serious: Yes (Other)
  Sender: FDA-Public Use
  Company Number: US-PFIZER INC-2013136494

PATIENT
  Age: 65 Year
  Sex: Male

DRUGS (2)
  1. INLYTA [Suspect]
     Indication: RENAL CANCER
     Dosage: 10 MG, 2X/DAY
     Route: 048
     Dates: start: 20121019
  2. INLYTA [Suspect]
     Dosage: 5 MG, 2X/DAY
     Route: 048
     Dates: start: 20120821

REACTIONS (7)
  - Weight decreased [Unknown]
  - Drug intolerance [Unknown]
  - Oral pain [Unknown]
  - Thyroid disorder [Unknown]
  - Speech disorder [Unknown]
  - Asthenia [Unknown]
  - Contusion [Unknown]
